FAERS Safety Report 9302189 (Version 1)
Quarter: 2013Q2

REPORT INFORMATION
  Report Type: Spontaneous
  Country: US (occurrence: US)
  Receive Date: 20130522
  Receipt Date: 20130522
  Transmission Date: 20140414
  Serious: No
  Sender: FDA-Public Use
  Company Number: US-009507513-1305USA011322

PATIENT
  Age: 30 Year
  Sex: Female

DRUGS (2)
  1. JANUVIA [Suspect]
     Indication: TYPE 2 DIABETES MELLITUS
     Dosage: 100 MG/ONCE A DAY
     Route: 048
  2. METFORMIN [Concomitant]

REACTIONS (2)
  - Impaired gastric emptying [Unknown]
  - Abdominal pain upper [Unknown]
